FAERS Safety Report 8657936 (Version 3)
Quarter: 2012Q4

REPORT INFORMATION
  Report Type: Report from Study
  Country: JP (occurrence: JP)
  Receive Date: 20120710
  Receipt Date: 20120905
  Transmission Date: 20130627
  Serious: Yes (Other)
  Sender: FDA-Public Use
  Company Number: PHHO2012JP010099

PATIENT
  Age: 60 Year
  Sex: Male
  Weight: 67 kg

DRUGS (8)
  1. AMN107 [Suspect]
     Indication: CHRONIC MYELOID LEUKAEMIA
     Route: 048
     Dates: start: 20080417
  2. AMN107 [Suspect]
     Dosage: 600 mg, UNK
     Route: 048
     Dates: start: 20080422
  3. POSTERISAN [Suspect]
     Indication: HAEMORRHOIDS
     Dates: start: 20090601
  4. LOXONIN [Suspect]
     Indication: HEADACHE
     Route: 048
     Dates: start: 20080422
  5. PREDONINE [Suspect]
     Dates: start: 20120606
  6. GENTACIN [Suspect]
     Indication: FOLLICULITIS
     Dates: start: 20080910
  7. FLIVAS [Suspect]
     Indication: BENIGN PROSTATIC HYPERPLASIA
     Dosage: 75 mg, UNK
     Route: 048
     Dates: start: 20091128
  8. EVIPROSTAT [Suspect]
     Indication: BENIGN PROSTATIC HYPERPLASIA
     Dosage: 3 DF, UNK
     Route: 048
     Dates: start: 20091128

REACTIONS (2)
  - Prostate cancer [Not Recovered/Not Resolved]
  - Second primary malignancy [Not Recovered/Not Resolved]
